FAERS Safety Report 6950365-1 (Version None)
Quarter: 2010Q3

REPORT INFORMATION
  Report Type: 
  Country: None (occurrence: None)
  Receive Date: 20100828
  Receipt Date: 20100208
  Transmission Date: 20110219
  Serious: No
  Sender: FDA-Public Use
  Company Number: US-ABBOTT-10P-163-0624823-00

PATIENT
  Sex: Female
  Weight: 63.106 kg

DRUGS (8)
  1. NIASPAN [Suspect]
     Indication: PRODUCT USED FOR UNKNOWN INDICATION
     Dates: start: 20090301, end: 20100201
  2. BENICAR [Concomitant]
     Indication: PRODUCT USED FOR UNKNOWN INDICATION
     Route: 048
  3. METFORMIN [Concomitant]
     Indication: PRODUCT USED FOR UNKNOWN INDICATION
     Dosage: 2 PILLS IN THE AM AND 2 PILLS IN THE PM
     Route: 048
     Dates: start: 20100125
  4. METFORMIN [Concomitant]
     Dosage: IN THE MORNING
  5. METFORMIN [Concomitant]
     Dosage: 2 PILLS IN THE AM AND 2 PILLS IN THE PM
  6. SIMVASTATIN [Concomitant]
     Indication: PRODUCT USED FOR UNKNOWN INDICATION
     Route: 048
  7. CALCIUM [Concomitant]
     Indication: PRODUCT USED FOR UNKNOWN INDICATION
     Dates: end: 20100201
  8. FISH OIL [Concomitant]
     Indication: PRODUCT USED FOR UNKNOWN INDICATION
     Dates: end: 20100201

REACTIONS (2)
  - BLOOD GLUCOSE INCREASED [None]
  - HYPOTENSION [None]
